FAERS Safety Report 4939501-6 (Version None)
Quarter: 2006Q1

REPORT INFORMATION
  Report Type: 
  Country: None (occurrence: None)
  Receive Date: 20060306
  Receipt Date: 20060214
  Transmission Date: 20060701
  Serious: No
  Sender: FDA-Public Use
  Company Number: 2006-138045-NL

PATIENT
  Age: 25 Year
  Sex: Female

DRUGS (2)
  1. MIRCETTE [Suspect]
     Indication: CONTRACEPTION
     Dosage: DF
     Route: 048
     Dates: start: 20040101
  2. CITALOPRAM HYDROBROMIDE [Concomitant]

REACTIONS (2)
  - FALSE POSITIVE LABORATORY RESULT [None]
  - PLATELET COUNT DECREASED [None]
